FAERS Safety Report 13660118 (Version 1)
Quarter: 2017Q2

REPORT INFORMATION
  Report Type: Spontaneous
  Country: US (occurrence: US)
  Receive Date: 20170616
  Receipt Date: 20170616
  Transmission Date: 20170830
  Serious: Yes (Hospitalization, Other)
  Sender: FDA-Public Use
  Company Number: US-DRREDDYS-USA/USA/17/0091427

PATIENT
  Age: 55 Year
  Sex: Male

DRUGS (4)
  1. CLOZAPINE. [Interacting]
     Active Substance: CLOZAPINE
     Route: 065
  2. CLONAZEPAM. [Interacting]
     Active Substance: CLONAZEPAM
     Indication: PRODUCT USED FOR UNKNOWN INDICATION
     Route: 065
  3. CLOZAPINE. [Interacting]
     Active Substance: CLOZAPINE
     Indication: SCHIZOPHRENIA
     Route: 065
  4. CITALOPRAM [Suspect]
     Active Substance: CITALOPRAM HYDROBROMIDE
     Indication: PRODUCT USED FOR UNKNOWN INDICATION
     Route: 065

REACTIONS (7)
  - Drug level increased [Unknown]
  - Drug interaction [Unknown]
  - Delirium [Unknown]
  - Intestinal dilatation [Unknown]
  - Respiratory failure [Unknown]
  - Sedation [Unknown]
  - Constipation [Unknown]
